FAERS Safety Report 16970233 (Version 1)
Quarter: 2019Q4

REPORT INFORMATION
  Report Type: Spontaneous
  Country: US (occurrence: US)
  Receive Date: 20191029
  Receipt Date: 20191029
  Transmission Date: 20200122
  Serious: No
  Sender: FDA-Public Use
  Company Number: US-009507513-1910USA008362

PATIENT
  Age: 66 Year
  Sex: Male

DRUGS (2)
  1. SULFAMETHOXAZOLE [Concomitant]
     Active Substance: SULFAMETHOXAZOLE
     Indication: NOCARDIOSIS
  2. PRIMAXIN IV [Suspect]
     Active Substance: CILASTATIN SODIUM\IMIPENEM
     Indication: NOCARDIOSIS

REACTIONS (1)
  - Product use in unapproved indication [Unknown]
